FAERS Safety Report 9416229 (Version 1)
Quarter: 2013Q3

REPORT INFORMATION
  Report Type: Spontaneous
  Country: US (occurrence: None)
  Receive Date: 20130723
  Receipt Date: 20130723
  Transmission Date: 20140515
  Serious: Yes (Disabling, Other)
  Sender: FDA-Public Use
  Company Number: None

PATIENT
  Age: 61 Year
  Sex: Male
  Weight: 90.72 kg

DRUGS (2)
  1. RISPERDAL CONSTA [Suspect]
     Indication: BIPOLAR DISORDER
     Dosage: EVERY 2 WEEKS
     Route: 030
     Dates: start: 20110530, end: 20110731
  2. DEPAKOTE [Suspect]
     Indication: BIPOLAR DISORDER
     Route: 048
     Dates: start: 20110515, end: 20110731

REACTIONS (10)
  - Pyrexia [None]
  - Tinnitus [None]
  - Musculoskeletal stiffness [None]
  - Tremor [None]
  - Confusional state [None]
  - Hyperhidrosis [None]
  - Myalgia [None]
  - Asthenia [None]
  - Pulse abnormal [None]
  - Blood pressure abnormal [None]
